FAERS Safety Report 9734784 (Version 1)
Quarter: 2013Q4

REPORT INFORMATION
  Report Type: Spontaneous
  Country: US (occurrence: None)
  Receive Date: 20131204
  Receipt Date: 20131204
  Transmission Date: 20140711
  Serious: Yes (Death)
  Sender: FDA-Public Use
  Company Number: US-ALKEM-000407

PATIENT
  Age: 54 Year
  Sex: Female

DRUGS (12)
  1. GABAPENTIN (GABAPENTIN) [Suspect]
     Indication: PRODUCT USED FOR UNKNOWN INDICATION
     Route: 048
  2. CETIRIZINE [Suspect]
     Indication: PRODUCT USED FOR UNKNOWN INDICATION
     Route: 048
  3. TRAZODONE (TRAZODONE) [Suspect]
     Route: 048
  4. LIPOZENE [Suspect]
     Route: 048
  5. MONTELUKAST (MONTELUKAST) [Suspect]
     Route: 048
  6. PREDNISONE (PREDNISONE) [Suspect]
     Route: 048
  7. AMITRIPTYLINE [Suspect]
     Route: 048
  8. DOCUSATE (DOCUSATE) [Suspect]
     Route: 048
  9. MAGNESIUM SALICYLATE/PAMABROM [Suspect]
     Route: 048
  10. LISINOPRIL (LISINOPRIL) [Suspect]
     Route: 048
  11. DIPHENHYDRAMINE [Suspect]
     Route: 048
  12. HYDROXYZINE (HYDROXYZINE) [Suspect]
     Route: 048

REACTIONS (1)
  - Death [None]
